FAERS Safety Report 9310371 (Version 1)
Quarter: 2013Q2

REPORT INFORMATION
  Report Type: Spontaneous
  Country: US (occurrence: US)
  Receive Date: 20130527
  Receipt Date: 20130527
  Transmission Date: 20140414
  Serious: Yes (Other)
  Sender: FDA-Public Use
  Company Number: US-BRISTOL-MYERS SQUIBB COMPANY-18930321

PATIENT
  Sex: Male

DRUGS (3)
  1. METFORMIN HCL [Suspect]
  2. GLYBURIDE [Suspect]
  3. JANUVIA [Suspect]

REACTIONS (2)
  - Cerebrovascular accident [Unknown]
  - Memory impairment [Unknown]
